FAERS Safety Report 12622101 (Version 1)
Quarter: 2016Q3

REPORT INFORMATION
  Report Type: Spontaneous
  Country: US (occurrence: US)
  Receive Date: 20160804
  Receipt Date: 20160804
  Transmission Date: 20161109
  Serious: No
  Sender: FDA-Public Use
  Company Number: US-ANACOR-2016ANA00189

PATIENT
  Age: 77 Year
  Sex: Female

DRUGS (1)
  1. KERYDIN [Suspect]
     Active Substance: TAVABOROLE

REACTIONS (4)
  - Application site erythema [Unknown]
  - Application site irritation [Unknown]
  - Drug administration error [Unknown]
  - Application site exfoliation [Unknown]
